FAERS Safety Report 4428174-7 (Version None)
Quarter: 2004Q3

REPORT INFORMATION
  Report Type: 
  Country: None (occurrence: None)
  Receive Date: 20040726
  Receipt Date: 20040312
  Transmission Date: 20050211
  Serious: No
  Sender: FDA-Public Use
  Company Number: USA040361922

PATIENT
  Age: 69 Year
  Sex: Female
  Weight: 59 kg

DRUGS (9)
  1. FORTEO [Suspect]
     Indication: OSTEOPOROSIS
     Dosage: 20 UG/1 DAY
     Dates: start: 20040110
  2. ACEON [Concomitant]
  3. ATENOLOL [Concomitant]
  4. NORVASC [Concomitant]
  5. DIAZEPAM [Concomitant]
  6. OXYCODONE HCL [Concomitant]
  7. ASPIRIN [Concomitant]
  8. GLUCOSAMIEN CHRONDROITIN [Concomitant]
  9. VITAMIN C [Concomitant]

REACTIONS (3)
  - ASTHENIA [None]
  - CHEST DISCOMFORT [None]
  - NAUSEA [None]
